FAERS Safety Report 6490261-X (Version None)
Quarter: 2009Q4

REPORT INFORMATION
  Report Type: 
  Country: None (occurrence: None)
  Receive Date: 20091211
  Receipt Date: 20091208
  Transmission Date: 20100525
  Serious: Yes (Life-Threatening, Hospitalization, Other)
  Sender: FDA-Public Use
  Company Number: US-BAYER-200938302NA

PATIENT
  Age: 21 Year
  Sex: Female
  Weight: 59 kg

DRUGS (11)
  1. YAZ [Suspect]
     Indication: CONTRACEPTION
     Dosage: TOTAL DAILY DOSE: 1 DF
     Route: 048
     Dates: start: 20040101, end: 20090901
  2. VIVAGLOBIN [Suspect]
     Indication: HYPOGAMMAGLOBULINAEMIA
     Dosage: 33 ML PER WEEK SUBCUTANEOUS INJECTION
     Route: 058
     Dates: start: 20071001
  3. ALEVE [Concomitant]
     Indication: HEADACHE
  4. IMITREX [Concomitant]
     Indication: HEADACHE
  5. ALBUTEROL [Concomitant]
     Indication: ASTHMA
     Dosage: LAST USES TWO MONTHS PRIOR TO EVENT
  6. IBUPROFEN [Concomitant]
  7. AUGMENTIN [Concomitant]
     Indication: SINUSITIS
     Dates: start: 20090910, end: 20090901
  8. TOPAMAX [Concomitant]
     Indication: MIGRAINE
  9. SINGULAIR [Concomitant]
     Indication: ASTHMA
  10. VITAMIN B-12 [Concomitant]
     Indication: MEDICAL DIET
  11. ZYRTEC [Concomitant]

REACTIONS (5)
  - ASTHENIA [None]
  - CEREBROVASCULAR ACCIDENT [None]
  - HEADACHE [None]
  - INTRACRANIAL VENOUS SINUS THROMBOSIS [None]
  - URTICARIA [None]
